FAERS Safety Report 17146450 (Version 2)
Quarter: 2019Q4

REPORT INFORMATION
  Report Type: Spontaneous
  Country: NL (occurrence: NL)
  Receive Date: 20191212
  Receipt Date: 20191230
  Transmission Date: 20200122
  Serious: Yes (Other)
  Sender: FDA-Public Use
  Company Number: NL-MYLANLABS-2019M1121883

PATIENT
  Age: 77 Year
  Sex: Male
  Weight: 85 kg

DRUGS (19)
  1. TRAVOPROST/TIMOLOL AL [Concomitant]
     Dosage: 1X/DAG1DRUPPEL BEIDE OGEN(40UG/5MG/ML)
  2. PARACETAMOL [Concomitant]
     Active Substance: ACETAMINOPHEN
     Dosage: 3XPER DAG 2 STUK (1000MG, Q8H)
  3. NITROGLYCERINE [Concomitant]
     Active Substance: NITROGLYCERIN
     Dosage: ZONODIG 1 PUFJE ONDER DE TONG (1DF)
  4. PACLITAXEL. [Concomitant]
     Active Substance: PACLITAXEL
     Dosage: 1XPER DAG 250MILIGRAM DIEN TOE IN 30MIN
     Dates: start: 20191021
  5. BIONAL [Concomitant]
     Dosage: 1 KEER PER DAG 1 STUK (1DF, QD)
  6. CARBOMER;HYALURONIC ACID [Concomitant]
     Dosage: ZO NODIG IN BEIDE OGEN (1DF)
  7. METOCLOPRAMIDE. [Concomitant]
     Active Substance: METOCLOPRAMIDE
     Dosage: ANTI-EMETICABOX1; DOSERING VLGS SCHEMA
     Dates: start: 20191021
  8. PERINDOPRIL [Concomitant]
     Active Substance: PERINDOPRIL
     Dosage: 1 X PER DAG 2 STUK (8MG, QD)
  9. CLEMASTINE [Concomitant]
     Active Substance: CLEMASTINE
     Dosage: 2 X PER DAG 1 STUK (1MG, BID)
  10. GEMCITABINE. [Suspect]
     Active Substance: GEMCITABINE
     Indication: PANCREATIC CARCINOMA
     Dosage: 2000MG/500ML (1DF)
     Route: 042
     Dates: start: 20191021, end: 20191021
  11. AMLODIPINE [Concomitant]
     Active Substance: AMLODIPINE BESYLATE
     Dosage: 1 X PER DAG 1 STUK (5MG,QD)
  12. METOPROLOL                         /00376903/ [Concomitant]
     Active Substance: METOPROLOL SUCCINATE
     Dosage: 1 X PER DAG 0,5STUK (25MG, QD)
  13. ACETYLSALICYLZUUR [Concomitant]
     Active Substance: ASPIRIN
     Dosage: 1 KEER PER DAG 1 STUK, 80 MCG,QD
  14. COLECALCIFEROL [Concomitant]
     Active Substance: CHOLECALCIFEROL
     Dosage: 1 KEER PER MAAND 1 STUK
  15. TIMOLOL. [Concomitant]
     Active Substance: TIMOLOL
     Dosage: 1 X PER DAG 1 DRUPPEL IN BEIDE OGEN
  16. MAGNESIUMHYDROXIDE [Concomitant]
     Dosage: ANTI-EMETICABOX1;DOSERING VLGS SCHEMA
     Dates: start: 20191021
  17. ATORVASTATINE                      /01326101/ [Concomitant]
     Active Substance: ATORVASTATIN
     Dosage: 1 X PER DAG 1 STUK (20MG, QD)
  18. ONDANSETRON [Concomitant]
     Active Substance: ONDANSETRON
     Dosage: 1 X PER DAG 1 STUK (8MG, QD)
  19. OMEPRAZOL                          /00661201/ [Concomitant]
     Active Substance: OMEPRAZOLE
     Dosage: 1 KEER PER DAG 1 STUK (20MG,QD)

REACTIONS (5)
  - Hypertension [Recovered/Resolved]
  - Retching [Recovered/Resolved]
  - Salivary hypersecretion [Recovered/Resolved]
  - Erythema [Recovered/Resolved]
  - Loss of consciousness [Recovered/Resolved]

NARRATIVE: CASE EVENT DATE: 20191021
